FAERS Safety Report 12254144 (Version 1)
Quarter: 2016Q2

REPORT INFORMATION
  Report Type: Spontaneous
  Country: US (occurrence: US)
  Receive Date: 20160411
  Receipt Date: 20160411
  Transmission Date: 20160815
  Serious: Yes (Hospitalization, Other)
  Sender: FDA-Public Use
  Company Number: US-CELGENEUS-USA-2016040994

PATIENT
  Age: 56 Year
  Sex: Male
  Weight: 71.73 kg

DRUGS (7)
  1. REVLIMID [Suspect]
     Active Substance: LENALIDOMIDE
     Route: 048
     Dates: start: 20160407
  2. REVLIMID [Suspect]
     Active Substance: LENALIDOMIDE
     Route: 048
     Dates: start: 201203
  3. REVLIMID [Suspect]
     Active Substance: LENALIDOMIDE
     Dosage: 15-10 MG
     Route: 048
     Dates: start: 201107
  4. REVLIMID [Suspect]
     Active Substance: LENALIDOMIDE
     Dosage: 50-25 MG
     Route: 048
     Dates: start: 201501
  5. REVLIMID [Suspect]
     Active Substance: LENALIDOMIDE
     Route: 048
     Dates: start: 201103
  6. REVLIMID [Suspect]
     Active Substance: LENALIDOMIDE
     Indication: PLASMA CELL MYELOMA
     Route: 048
     Dates: start: 201010
  7. REVLIMID [Suspect]
     Active Substance: LENALIDOMIDE
     Dosage: 10-5 MG
     Route: 048
     Dates: start: 201303

REACTIONS (5)
  - Back pain [Unknown]
  - Ejection fraction decreased [Unknown]
  - Platelet count decreased [Unknown]
  - Spinal compression fracture [Unknown]
  - Influenza [Unknown]

NARRATIVE: CASE EVENT DATE: 201603
